FAERS Safety Report 12421190 (Version 1)
Quarter: 2016Q2

REPORT INFORMATION
  Report Type: Spontaneous
  Country: FR (occurrence: FR)
  Receive Date: 20160531
  Receipt Date: 20160531
  Transmission Date: 20160815
  Serious: Yes (Hospitalization)
  Sender: FDA-Public Use
  Company Number: FR-PFIZER INC-2016271641

PATIENT
  Age: 59 Year
  Sex: Male

DRUGS (15)
  1. ESOMEPRAZOLE [Suspect]
     Active Substance: ESOMEPRAZOLE
     Indication: PROPHYLAXIS AGAINST GASTROINTESTINAL ULCER
     Dosage: 20 MG, 1X/DAY
     Route: 048
     Dates: start: 2015
  2. RISPERDAL [Suspect]
     Active Substance: RISPERIDONE
     Indication: MENTAL DISORDER
     Dosage: 2 MG, 1X/DAY
     Route: 048
     Dates: start: 2015
  3. COTAREG [Suspect]
     Active Substance: HYDROCHLOROTHIAZIDE\VALSARTAN
     Indication: HYPERTENSION
     Dosage: 1 DF, 1X/DAY
     Route: 048
     Dates: start: 2015
  4. LAMICTAL [Suspect]
     Active Substance: LAMOTRIGINE
     Indication: MENTAL DISORDER
     Dosage: 200 MG, 1X/DAY
     Route: 048
     Dates: start: 2015
  5. LAROXYL [Suspect]
     Active Substance: AMITRIPTYLINE
     Indication: MENTAL DISORDER
     Dosage: 40 MG, 1X/DAY
     Route: 048
     Dates: start: 2015
  6. KARDEGIC [Concomitant]
     Active Substance: ASPIRIN LYSINE
     Dosage: UNK
     Dates: start: 2016
  7. AMLOR [Suspect]
     Active Substance: AMLODIPINE BESYLATE
     Indication: HYPERTENSION
     Dosage: 10 MG, 1X/DAY
     Route: 048
     Dates: start: 2015
  8. SIMPONI [Suspect]
     Active Substance: GOLIMUMAB
     Indication: ANKYLOSING SPONDYLITIS
     Dosage: 50 MG, MONTHLY
     Route: 058
  9. KETOPROFENE /00321701/ [Suspect]
     Active Substance: KETOPROFEN
     Dosage: 100 MG, 1X/DAY
     Route: 048
     Dates: start: 2015
  10. DEROXAT [Suspect]
     Active Substance: PAROXETINE HYDROCHLORIDE
     Indication: DEPRESSION
     Dosage: 20 MG, 1X/DAY
     Route: 048
     Dates: start: 2015
  11. KETOPROFENE /00321701/ [Suspect]
     Active Substance: KETOPROFEN
     Indication: ANKYLOSING SPONDYLITIS
     Dosage: 100 MG, 2X/DAY
     Route: 042
  12. DEROXAT [Suspect]
     Active Substance: PAROXETINE HYDROCHLORIDE
     Indication: MENTAL DISORDER
     Dosage: 50 MG, 1X/DAY
     Route: 048
     Dates: start: 2015
  13. XEROQUEL [Concomitant]
     Active Substance: QUETIAPINE FUMARATE
     Dosage: UNK
     Dates: start: 2015
  14. AMAREL [Suspect]
     Active Substance: GLIMEPIRIDE
     Indication: DIABETES MELLITUS
     Dosage: 2 MG, 1X/DAY
     Route: 048
     Dates: start: 2015
  15. OXYCONTIN [Concomitant]
     Active Substance: OXYCODONE HYDROCHLORIDE
     Dosage: UNK
     Dates: start: 2016

REACTIONS (1)
  - Facial paralysis [Not Recovered/Not Resolved]

NARRATIVE: CASE EVENT DATE: 20160429
